FAERS Safety Report 11860454 (Version 1)
Quarter: 2015Q4

REPORT INFORMATION
  Report Type: Spontaneous
  Country: FR (occurrence: FR)
  Receive Date: 20151222
  Receipt Date: 20151222
  Transmission Date: 20160305
  Serious: Yes (Life-Threatening)
  Sender: FDA-Public Use
  Company Number: FR-TEVA-619827ISR

PATIENT
  Age: 3 Month
  Sex: Female

DRUGS (10)
  1. ENDOXAN [Suspect]
     Active Substance: CYCLOPHOSPHAMIDE
     Dosage: FIRST COURSE OF CHEMOTHERAPY -CPT SIOP PROTOCOL
     Route: 042
     Dates: start: 20150630
  2. VINCRISTINE HOSPIRA 2 MG/2ML [Suspect]
     Active Substance: VINCRISTINE
     Dosage: FIRST COURSE OF CHEMOTHERAPY - CPT SIOP PROTOCOL
     Route: 042
     Dates: start: 20150630
  3. SABRIL [Concomitant]
     Active Substance: VIGABATRIN
     Dosage: AS MONOTHERAPY
  4. ETOPOSIDE TEVA [Suspect]
     Active Substance: ETOPOSIDE
     Dosage: SECOND COURSE OF CHEMOTHERAPY - CPT SIOP PROTOCOL
     Route: 037
     Dates: start: 20150728
  5. ETOPOSIDE TEVA [Suspect]
     Active Substance: ETOPOSIDE
     Dosage: FIRST COURSE OF CHEMOTHERAPY - CPT SIOP PROTOCOL
     Route: 042
     Dates: start: 20150630
  6. GAVISCON [Concomitant]
     Active Substance: ALUMINUM HYDROXIDE\MAGNESIUM CARBONATE
  7. ETOPOSIDE TEVA [Suspect]
     Active Substance: ETOPOSIDE
     Dosage: SECOND COURSE OF CHEMOTHERAPY - CPT SIOP PROTOCOL
     Route: 042
     Dates: start: 20150728, end: 20150801
  8. VINCRISTINE HOSPIRA 2 MG/2ML [Suspect]
     Active Substance: VINCRISTINE
     Dosage: SECOND COURSE OF CHEMOTHERAPY - CPT SIOP PROTOCOL
     Dates: start: 20150728, end: 20150801
  9. ARACYTINE [Suspect]
     Active Substance: CYTARABINE
     Dosage: TWO INJECTIONS
     Route: 037
     Dates: start: 20150630
  10. CARBOPLATINE HOSPIRA [Suspect]
     Active Substance: CARBOPLATIN
     Dosage: SECOND COURSE OF CHEMOTHERAPY PROTOCOL CPT SIOP
     Dates: start: 20150728, end: 20150801

REACTIONS (2)
  - Aplasia [Recovered/Resolved]
  - Venoocclusive liver disease [Recovered/Resolved]

NARRATIVE: CASE EVENT DATE: 20150731
